FAERS Safety Report 5089888-1 (Version None)
Quarter: 2006Q3

REPORT INFORMATION
  Report Type: 
  Country: None (occurrence: None)
  Receive Date: 20060727
  Receipt Date: 20060627
  Transmission Date: 20061208
  Serious: Yes (Other)
  Sender: FDA-Public Use
  Company Number: 2006067489

PATIENT
  Age: 80 Year
  Sex: Female
  Weight: 56.246 kg

DRUGS (4)
  1. LYRICA [Suspect]
     Indication: TRIGEMINAL NEURALGIA
     Dosage: 300 MG (50 MG, 3 IN 1 D), UNKNOWN
     Route: 065
     Dates: start: 20060101, end: 20060101
  2. HYZAAR (HYDRICHLOROTHIAZIDE, LOSARTAN POTASSIUM) [Concomitant]
  3. EVISTA (RALOXIFENENE HYDROCHLORIDE) [Concomitant]
  4. MUTIVITAMINS (MUTIVITAMINS) [Concomitant]

REACTIONS (3)
  - DIPLOPIA [None]
  - EMOTIONAL DISTRESS [None]
  - VISION BLURRED [None]
